FAERS Safety Report 4544850-X (Version None)
Quarter: 2005Q1

REPORT INFORMATION
  Report Type: 
  Country: None (occurrence: None)
  Receive Date: 20050105
  Receipt Date: 20041228
  Transmission Date: 20050727
  Serious: Yes (Hospitalization)
  Sender: FDA-Public Use
  Company Number: US-MERCK-0412USA03170

PATIENT
  Sex: Female

DRUGS (1)
  1. VIOXX [Suspect]
     Indication: NEUROPATHY
     Route: 048
     Dates: start: 20001201, end: 20011004

REACTIONS (3)
  - ADVERSE EVENT [None]
  - DEEP VEIN THROMBOSIS [None]
  - RENAL FAILURE [None]
